FAERS Safety Report 7442263-4 (Version None)
Quarter: 2011Q2

REPORT INFORMATION
  Report Type: 
  Country: None (occurrence: None)
  Receive Date: 20110425
  Receipt Date: 20110425
  Transmission Date: 20111010
  Serious: Yes (Other)
  Sender: FDA-Public Use
  Company Number: None

PATIENT
  Sex: Male
  Weight: 89.3586 kg

DRUGS (2)
  1. PRAVACHOL [Suspect]
     Indication: HYPERLIPIDAEMIA
     Dosage: 10 MG ONE DAILY ORAL LESS THAN 4 MONTHS
     Route: 048
  2. SIMVASTATIN [Suspect]
     Indication: HYPERLIPIDAEMIA
     Dosage: 40 MG ONE DAILY ORAL LESS THAN 2 MONTH
     Route: 048

REACTIONS (3)
  - DRUG INTOLERANCE [None]
  - NAUSEA [None]
  - DIARRHOEA [None]
